FAERS Safety Report 8379653-1 (Version None)
Quarter: 2012Q2

REPORT INFORMATION
  Report Type: 
  Country: None (occurrence: None)
  Receive Date: 20120523
  Receipt Date: 20120517
  Transmission Date: 20120825
  Serious: Yes (Hospitalization)
  Sender: FDA-Public Use
  Company Number: US-BAYER-2012-032576

PATIENT
  Age: 40 Year
  Sex: Female
  Weight: 71.202 kg

DRUGS (7)
  1. ANTIBIOTICS [Concomitant]
     Dosage: UNK UNK, PRN
  2. NSAID'S [Concomitant]
     Dosage: UNK UNK, PRN
  3. ADVAIR DISKUS 100/50 [Concomitant]
     Dosage: UNK
     Dates: start: 20070101
  4. PREDNISONE TAB [Concomitant]
  5. AUGMENTIN [Concomitant]
  6. DROSPIRENONE AND ETHINYL ESTRADIOL [Suspect]
     Dosage: UNK
     Dates: start: 20070101, end: 20100101
  7. YAZ [Suspect]
     Dosage: UNK
     Dates: start: 20070101, end: 20100101

REACTIONS (8)
  - CHEST PAIN [None]
  - ADENOMYOSIS [None]
  - PLEURISY [None]
  - VOCAL CORD DISORDER [None]
  - PULMONARY EMBOLISM [None]
  - PAIN [None]
  - INJURY [None]
  - HYPOTHYROIDISM [None]
